FAERS Safety Report 7654117-9 (Version None)
Quarter: 2011Q3

REPORT INFORMATION
  Report Type: 
  Country: None (occurrence: None)
  Receive Date: 20110803
  Receipt Date: 20110729
  Transmission Date: 20111222
  Serious: Yes (Death)
  Sender: FDA-Public Use
  Company Number: PHHY2011BR68936

PATIENT
  Sex: Female

DRUGS (4)
  1. EXELON [Suspect]
     Route: 048
  2. EXELON [Suspect]
     Route: 048
  3. STALEVO 100 [Suspect]
     Dosage: 50 MG OF LEVODOPA, 12.5 MG OF CARBIDOPA AND 200 MG OF ENTACAPONE
     Route: 048
  4. EXELON [Suspect]
     Route: 062

REACTIONS (4)
  - DEATH [None]
  - DYSPHAGIA [None]
  - ABDOMINAL DISCOMFORT [None]
  - BLOOD PRESSURE INCREASED [None]
